FAERS Safety Report 8493237-6 (Version None)
Quarter: 2012Q3

REPORT INFORMATION
  Report Type: 
  Country: None (occurrence: None)
  Receive Date: 20120706
  Receipt Date: 20120702
  Transmission Date: 20120928
  Serious: Yes (Hospitalization, Other)
  Sender: FDA-Public Use
  Company Number: PHHY2012JP057772

PATIENT
  Age: 75 Year
  Sex: Female

DRUGS (2)
  1. GILENYA [Suspect]
     Dosage: 0.5 MG, UNK
     Route: 048
     Dates: start: 20120117, end: 20120702
  2. ACYCLOVIR [Suspect]
     Dosage: UNK UKN, UNK
     Route: 048
     Dates: start: 20120629

REACTIONS (3)
  - GENERAL PHYSICAL CONDITION ABNORMAL [None]
  - WHITE BLOOD CELL COUNT DECREASED [None]
  - HERPES ZOSTER [None]
